FAERS Safety Report 25662600 (Version 1)
Quarter: 2025Q3

REPORT INFORMATION
  Report Type: Spontaneous
  Country: CN (occurrence: CN)
  Receive Date: 20250811
  Receipt Date: 20250811
  Transmission Date: 20251021
  Serious: Yes (Other)
  Sender: BAXTER
  Company Number: None

PATIENT
  Age: 38 Year
  Sex: Female
  Weight: 57 kg

DRUGS (20)
  1. CYCLOPHOSPHAMIDE [Suspect]
     Active Substance: CYCLOPHOSPHAMIDE
     Indication: Medulloblastoma
     Dosage: 1 G, EVERY 4 WK (D2-D3)
     Route: 065
     Dates: start: 20250312
  2. CYCLOPHOSPHAMIDE [Suspect]
     Active Substance: CYCLOPHOSPHAMIDE
     Dosage: 1 G, EVERY 4 WK (D2-D3)
     Route: 065
     Dates: start: 20250411
  3. CYCLOPHOSPHAMIDE [Suspect]
     Active Substance: CYCLOPHOSPHAMIDE
     Dosage: 1 G, EVERY 4 WK (D2-D3)
     Route: 065
     Dates: start: 20250511
  4. CYCLOPHOSPHAMIDE [Suspect]
     Active Substance: CYCLOPHOSPHAMIDE
     Dosage: 1 G, EVERY 4 WK (D2-D3)
     Route: 065
     Dates: start: 20250615
  5. CYCLOPHOSPHAMIDE [Suspect]
     Active Substance: CYCLOPHOSPHAMIDE
     Dosage: 1 G, QD (D2-D3) Q4W
     Route: 041
     Dates: start: 20250715, end: 20250716
  6. MESNA [Suspect]
     Active Substance: MESNA
     Indication: Detoxification
     Route: 065
     Dates: start: 20250311
  7. MESNA [Suspect]
     Active Substance: MESNA
     Route: 065
     Dates: start: 20250410
  8. MESNA [Suspect]
     Active Substance: MESNA
     Route: 065
     Dates: start: 20250510
  9. MESNA [Suspect]
     Active Substance: MESNA
     Route: 065
     Dates: start: 20250614
  10. MESNA [Suspect]
     Active Substance: MESNA
     Route: 065
     Dates: start: 20250714
  11. CISPLATIN [Suspect]
     Active Substance: CISPLATIN
     Indication: Medulloblastoma
     Dosage: 60 MG, EVERY 4 WK (D1-D2)
     Route: 065
     Dates: start: 20250311
  12. CISPLATIN [Suspect]
     Active Substance: CISPLATIN
     Dosage: 60 MG, EVERY 4 WK (D1-D2)
     Route: 065
     Dates: start: 20250410
  13. CISPLATIN [Suspect]
     Active Substance: CISPLATIN
     Dosage: 60 MG, EVERY 4 WK (D1-D2)
     Route: 065
     Dates: start: 20250510
  14. CISPLATIN [Suspect]
     Active Substance: CISPLATIN
     Dosage: 60 MG, EVERY 4 WK (D1-D2)
     Route: 065
     Dates: start: 20250614
  15. CISPLATIN [Suspect]
     Active Substance: CISPLATIN
     Dosage: 60 MG, QD (D1-D2) Q4W
     Route: 041
     Dates: start: 20250714, end: 20250715
  16. VINCRISTINE SULFATE [Suspect]
     Active Substance: VINCRISTINE SULFATE
     Indication: Medulloblastoma
     Dosage: 2 MG, EVERY 4 WK (D1-D8-D15)
     Route: 042
     Dates: start: 20250311
  17. VINCRISTINE SULFATE [Suspect]
     Active Substance: VINCRISTINE SULFATE
     Dosage: 2 MG, EVERY 4 WK (D1-D8-D15)
     Route: 042
     Dates: start: 20250410
  18. VINCRISTINE SULFATE [Suspect]
     Active Substance: VINCRISTINE SULFATE
     Dosage: 2 MG, EVERY 4 WK (D1-D8-D15)
     Route: 042
     Dates: start: 20250510
  19. VINCRISTINE SULFATE [Suspect]
     Active Substance: VINCRISTINE SULFATE
     Dosage: 2 MG, EVERY 4 WK (D1-D8-D15)
     Route: 042
     Dates: start: 20250614
  20. VINCRISTINE SULFATE [Suspect]
     Active Substance: VINCRISTINE SULFATE
     Dosage: 2 MG, QD (D1-D8-D15) Q4W
     Route: 042
     Dates: start: 20250714, end: 20250721

REACTIONS (5)
  - Agranulocytosis [Recovering/Resolving]
  - Haemoglobin decreased [Recovering/Resolving]
  - Platelet count decreased [Recovering/Resolving]
  - White blood cell count decreased [Recovering/Resolving]
  - Asthenia [Unknown]

NARRATIVE: CASE EVENT DATE: 20250722
